FAERS Safety Report 24264630 (Version 2)
Quarter: 2024Q3

REPORT INFORMATION
  Report Type: Spontaneous
  Country: JP (occurrence: JP)
  Receive Date: 20240829
  Receipt Date: 20240923
  Transmission Date: 20241016
  Serious: Yes (Other)
  Sender: FERRING
  Company Number: JP-ferring-EVA202401285FERRINGPH

PATIENT

DRUGS (1)
  1. DEGARELIX [Suspect]
     Active Substance: DEGARELIX
     Indication: Prostate cancer
     Dosage: UNK
     Route: 058

REACTIONS (2)
  - Internal haemorrhage [Recovered/Resolved]
  - Induration [Recovered/Resolved]
